FAERS Safety Report 8481801-X (Version None)
Quarter: 2012Q2

REPORT INFORMATION
  Report Type: 
  Country: None (occurrence: None)
  Receive Date: 20120402
  Receipt Date: 20091216
  Transmission Date: 20120825
  Serious: Yes (Other)
  Sender: FDA-Public Use
  Company Number: PHEH2009US18047

PATIENT
  Age: 63 Year
  Sex: Female

DRUGS (2)
  1. EXFORGE HCT [Suspect]
     Dosage: VAL160/AMLO5/HCT 12.5 MG, ONCE A DAY
  2. VITAMINS (NO INGREDIENTS/SUBSTANCES) [Concomitant]

REACTIONS (3)
  - FLUID RETENTION [None]
  - OEDEMA PERIPHERAL [None]
  - GENERALISED OEDEMA [None]
